FAERS Safety Report 22521248 (Version 1)
Quarter: 2023Q2

REPORT INFORMATION
  Report Type: Spontaneous
  Country: US (occurrence: None)
  Receive Date: 20230605
  Receipt Date: 20230605
  Transmission Date: 20230722
  Serious: Yes (Other)
  Sender: FDA-Public Use
  Company Number: None

PATIENT
  Age: 80 Year
  Sex: Female

DRUGS (2)
  1. ELIQUIS [Suspect]
     Active Substance: APIXABAN
     Indication: Embolism
  2. ELIQUIS [Suspect]
     Active Substance: APIXABAN
     Indication: Thrombosis

REACTIONS (2)
  - Deep vein thrombosis [None]
  - Drug ineffective [None]

NARRATIVE: CASE EVENT DATE: 20230602
